FAERS Safety Report 7465242-X (Version None)
Quarter: 2011Q2

REPORT INFORMATION
  Report Type: 
  Country: None (occurrence: None)
  Receive Date: 20110509
  Receipt Date: 20110427
  Transmission Date: 20111010
  Serious: Yes (Hospitalization)
  Sender: FDA-Public Use
  Company Number: PHHY2011FR37101

PATIENT
  Sex: Female

DRUGS (11)
  1. TEGRETOL [Suspect]
     Indication: EPILEPSY
     Dosage: 1.5 TO 2 TABLETS DAILY
     Dates: start: 19800101
  2. DEPAKENE [Concomitant]
     Dosage: AS LONG STANDING-TREATMENT
  3. VICTAN [Concomitant]
     Dosage: AS LONG STANDING-TREATMENT.
  4. MIANSERIN [Concomitant]
     Dosage: 30 MG, AS LONG STANDING-TREATMENT
  5. PREVISCAN [Interacting]
     Indication: SUPERIOR VENA CAVA SYNDROME
     Dosage: UNK
     Dates: start: 20060101
  6. ACETAMINOPHEN AND TRAMADOL HCL [Interacting]
     Indication: PAIN
     Dosage: 3 DF, DAILY
     Dates: start: 20110323
  7. INNOVAR [Interacting]
     Indication: ASTHMA
     Dosage: 2 PUFFS TWICE DAILY, BID
     Dates: start: 20050101
  8. URBANYL [Concomitant]
     Dosage: 10 MG, AS LONG STANDING-TREATMENT
  9. VOLTAREN [Concomitant]
     Dates: start: 20110323
  10. SINGULAIR [Concomitant]
     Dosage: AS LONG STANDING-TREATMENT
  11. CLARITIN [Concomitant]
     Dosage: AS LONG STANDING-TREATMENT

REACTIONS (4)
  - DRUG INTERACTION [None]
  - INTERNATIONAL NORMALISED RATIO INCREASED [None]
  - GINGIVAL BLEEDING [None]
  - HAEMATURIA [None]
